FAERS Safety Report 14977139 (Version 1)
Quarter: 2018Q2

REPORT INFORMATION
  Report Type: Report from Study
  Country: None (occurrence: ES)
  Receive Date: 20180606
  Receipt Date: 20180606
  Transmission Date: 20180711
  Serious: Yes (Disabling)
  Sender: FDA-Public Use
  Company Number: ES-ABBVIE-18K-144-2378175-00

PATIENT
  Age: 78 Year
  Sex: Female

DRUGS (1)
  1. DUODOPA [Suspect]
     Active Substance: CARBIDOPA\LEVODOPA
     Indication: PARKINSON^S DISEASE
     Route: 050
     Dates: start: 20160121

REACTIONS (3)
  - Stoma site hypergranulation [Recovering/Resolving]
  - Fall [Recovered/Resolved]
  - Rotator cuff syndrome [Unknown]

NARRATIVE: CASE EVENT DATE: 201805
